FAERS Safety Report 8774884 (Version 1)
Quarter: 2012Q4

REPORT INFORMATION
  Report Type: 
  Country: DE (occurrence: DE)
  Receive Date: 20120910
  Receipt Date: 20120910
  Transmission Date: 20130627
  Serious: Yes (Other)
  Sender: FDA-Public Use
  Company Number: DE-009507513-1209DEU002842

PATIENT

DRUGS (1)
  1. ECURAL [Suspect]
     Indication: DYSHIDROSIS
     Dosage: 10 g, UNK
     Route: 061
     Dates: start: 1994, end: 2012

REACTIONS (3)
  - Cerebrovascular accident [Not Recovered/Not Resolved]
  - Transient ischaemic attack [Not Recovered/Not Resolved]
  - Glaucoma [Not Recovered/Not Resolved]
